FAERS Safety Report 9970040 (Version 2)
Quarter: 2014Q3

REPORT INFORMATION
  Report Type: Spontaneous
  Country: US (occurrence: US)
  Receive Date: 20140306
  Receipt Date: 20140725
  Transmission Date: 20150326
  Serious: Yes (Other)
  Sender: FDA-Public Use
  Company Number: 2014SP001036

PATIENT
  Age: 64 Year
  Sex: Female
  Weight: 56.24 kg

DRUGS (3)
  1. DOXYCYCLINE. [Suspect]
     Active Substance: DOXYCYCLINE
     Indication: RHEUMATOID ARTHRITIS
     Dates: start: 2013
  2. TOFACITINIB CITRATE [Suspect]
     Active Substance: TOFACITINIB CITRATE
     Indication: RHEUMATOID ARTHRITIS
     Dates: start: 2013, end: 201306
  3. ALKASOL [Concomitant]
     Indication: GASTRIC DISORDER

REACTIONS (4)
  - Cataract operation [Unknown]
  - Knee operation [Unknown]
  - Malaise [Unknown]
  - Abdominal pain [Recovered/Resolved]

NARRATIVE: CASE EVENT DATE: 2013
